FAERS Safety Report 6229266-2 (Version None)
Quarter: 2009Q2

REPORT INFORMATION
  Report Type: 
  Country: None (occurrence: None)
  Receive Date: 20090615
  Receipt Date: 20090608
  Transmission Date: 20091009
  Serious: Yes (Life-Threatening)
  Sender: FDA-Public Use
  Company Number: DK-BAYER-200922604GPV

PATIENT
  Age: 45 Year
  Sex: Female
  Weight: 78 kg

DRUGS (1)
  1. AVELOX [Suspect]
     Indication: PNEUMONIA LEGIONELLA
     Dosage: TOTAL DAILY DOSE: 400 MG  UNIT DOSE: 400 MG
     Route: 041
     Dates: start: 20090420, end: 20090423

REACTIONS (2)
  - CONVULSION [None]
  - LIVER DISORDER [None]
